FAERS Safety Report 8506933-9 (Version None)
Quarter: 2012Q3

REPORT INFORMATION
  Report Type: 
  Country: None (occurrence: None)
  Receive Date: 20120712
  Receipt Date: 20120709
  Transmission Date: 20120928
  Serious: Yes (Death, Hospitalization)
  Sender: FDA-Public Use
  Company Number: US-JNJFOC-20120614118

PATIENT
  Sex: Female
  Weight: 86.18 kg

DRUGS (7)
  1. OTHER THERAPEUTIC MEDICATIONS [Concomitant]
  2. GLUCOPHAGE [Concomitant]
     Indication: DIABETES MELLITUS
     Route: 048
     Dates: end: 20120619
  3. ZOCOR [Concomitant]
     Indication: BLOOD CHOLESTEROL
  4. ASPIRIN [Concomitant]
  5. ATENOLOL [Concomitant]
     Indication: BLOOD PRESSURE
  6. XARELTO [Suspect]
     Indication: ATRIAL FIBRILLATION
     Route: 048
     Dates: start: 20120517, end: 20120619
  7. ZYLET [Concomitant]
     Route: 031

REACTIONS (1)
  - CEREBRAL HAEMORRHAGE [None]
